FAERS Safety Report 9292949 (Version 1)
Quarter: 2013Q2

REPORT INFORMATION
  Report Type: Spontaneous
  Country: US (occurrence: US)
  Receive Date: 20130516
  Receipt Date: 20130516
  Transmission Date: 20140414
  Serious: Yes (Other)
  Sender: FDA-Public Use
  Company Number: US-BAXTER-2013BAX017974

PATIENT
  Age: 51 Year
  Sex: Male

DRUGS (6)
  1. NEXTERONE_AMIODARONE, HYDROCHLORIDE 1.80 MG/ML_SOLUTION FOR INFUSION_B [Suspect]
     Indication: VENTRICULAR TACHYCARDIA
  2. NEXTERONE_AMIODARONE, HYDROCHLORIDE 1.80 MG/ML_SOLUTION FOR INFUSION_B [Suspect]
     Route: 065
  3. NEXTERONE_AMIODARONE, HYDROCHLORIDE 1.80 MG/ML_SOLUTION FOR INFUSION_B [Suspect]
  4. PROCAINAMIDE [Concomitant]
     Indication: ARRHYTHMIA
  5. MEXILETINE [Concomitant]
     Indication: ARRHYTHMIA
  6. SOTALOL [Concomitant]
     Indication: ARRHYTHMIA

REACTIONS (2)
  - Drug ineffective [Unknown]
  - Ventricular tachycardia [Unknown]
